FAERS Safety Report 12631932 (Version 2)
Quarter: 2016Q3

REPORT INFORMATION
  Report Type: Spontaneous
  Country: US (occurrence: US)
  Receive Date: 20160808
  Receipt Date: 20160808
  Transmission Date: 20161109
  Serious: No
  Sender: FDA-Public Use
  Company Number: US-BEH-2016061459

PATIENT
  Sex: Female
  Weight: 74 kg

DRUGS (16)
  1. EPIPEN [Concomitant]
     Active Substance: EPINEPHRINE
  2. L-M-X [Concomitant]
  3. DICLOFENAC SOD [Concomitant]
     Active Substance: DICLOFENAC SODIUM
  4. HIZENTRA [Suspect]
     Active Substance: HUMAN IMMUNOGLOBULIN G
     Indication: SELECTIVE IGG SUBCLASS DEFICIENCY
     Route: 058
  5. PRILOSEC [Concomitant]
     Active Substance: OMEPRAZOLE MAGNESIUM
  6. PREDNISONE. [Concomitant]
     Active Substance: PREDNISONE
  7. DIPHENHYDRAMINE. [Concomitant]
     Active Substance: DIPHENHYDRAMINE
  8. SIMVASTATIN. [Concomitant]
     Active Substance: SIMVASTATIN
  9. METHOCARBAMOL. [Concomitant]
     Active Substance: METHOCARBAMOL
  10. TRAMADOL. [Concomitant]
     Active Substance: TRAMADOL
  11. ALLEGRA-D [Concomitant]
     Active Substance: FEXOFENADINE\PSEUDOEPHEDRINE
  12. PROGESTERONE. [Concomitant]
     Active Substance: PROGESTERONE
  13. ACETAMINOPHEN. [Concomitant]
     Active Substance: ACETAMINOPHEN
  14. DYMISTA [Concomitant]
     Active Substance: AZELASTINE HYDROCHLORIDE\FLUTICASONE PROPIONATE
  15. TOLTERODINE [Concomitant]
     Active Substance: TOLTERODINE
  16. MUCINEX [Concomitant]
     Active Substance: GUAIFENESIN

REACTIONS (1)
  - Upper respiratory tract infection [Unknown]
